FAERS Safety Report 7992404-5 (Version None)
Quarter: 2011Q4

REPORT INFORMATION
  Report Type: 
  Country: None (occurrence: None)
  Receive Date: 20111219
  Receipt Date: 20101117
  Transmission Date: 20120403
  Serious: No
  Sender: FDA-Public Use
  Company Number: US-ASTRAZENECA-2010SE54853

PATIENT
  Sex: Male
  Weight: 89.8 kg

DRUGS (2)
  1. CRESTOR [Suspect]
     Route: 048
  2. SIMOR [Suspect]
     Dosage: UNSURE-TAKES 1 BLUE-GREEN PILL AT BEDTIME
     Route: 065
     Dates: start: 20100914

REACTIONS (4)
  - PARAESTHESIA [None]
  - PRURITUS [None]
  - SWELLING FACE [None]
  - PHARYNGEAL OEDEMA [None]
